FAERS Safety Report 10243897 (Version 1)
Quarter: 2014Q1

REPORT INFORMATION
  Report Type: Spontaneous
  Country: US (occurrence: None)
  Receive Date: 20140306
  Receipt Date: 20140306
  Transmission Date: 20141002
  Serious: Yes (Other)
  Sender: FDA-Public Use
  Company Number: 163-21880-13052150

PATIENT
  Age: 56 Year
  Sex: Male
  Weight: 84.37 kg

DRUGS (11)
  1. REVLIMID (LENALIDOMIDE) (15 MILLIGRAM, CAPSULES) [Suspect]
     Indication: PLASMA CELL MYELOMA
     Route: 048
     Dates: start: 20111108
  2. ACYCLOVIR (ACICLOVIR) (ACICLOVIR) [Concomitant]
  3. BABY ASPIRIN (ACETYLSALICYLIC ACID) [Concomitant]
  4. CALCIUM (CALCIUM) [Concomitant]
  5. CELEXA (CITALOPRAM HYDROBROMIDE) [Concomitant]
  6. DEXAMETHASONE (DEXAMETHASONE) [Concomitant]
  7. FOLBIC (HEPAGROSEVIT FORTE-N) [Concomitant]
  8. LUNESTA [Concomitant]
  9. MULTIVITAMINS (MULTIVITAMINS) [Concomitant]
  10. NEXIUM (ESOMEPRAZOLE) [Concomitant]
  11. VELCADE (BORTEZOMIB) [Concomitant]

REACTIONS (1)
  - Laboratory test abnormal [None]
